FAERS Safety Report 7768544-2 (Version None)
Quarter: 2011Q3

REPORT INFORMATION
  Report Type: 
  Country: None (occurrence: None)
  Receive Date: 20110922
  Receipt Date: 20101001
  Transmission Date: 20111222
  Serious: No
  Sender: FDA-Public Use
  Company Number: US-ASTRAZENECA-2010SE46452

PATIENT
  Age: 21334 Day
  Sex: Female
  Weight: 103.9 kg

DRUGS (7)
  1. KLONOPIN [Concomitant]
     Indication: BIPOLAR DISORDER
  2. SEROQUEL [Suspect]
     Indication: BIPOLAR DISORDER
     Route: 048
  3. LEVOTHYROXINE SODIUM [Concomitant]
     Indication: HYPOTHYROIDISM
  4. ZOLOFT [Concomitant]
     Indication: BIPOLAR DISORDER
  5. LITHIUM CARBONATE [Concomitant]
     Indication: BIPOLAR DISORDER
  6. TRAZODONE HCL [Concomitant]
     Indication: BIPOLAR DISORDER
  7. ZOCOR [Concomitant]
     Indication: BLOOD CHOLESTEROL INCREASED

REACTIONS (1)
  - NASOPHARYNGITIS [None]
